FAERS Safety Report 8235963 (Version 2)
Quarter: 2013Q1

REPORT INFORMATION
  Report Type: Spontaneous
  Country: IL (occurrence: IL)
  Receive Date: 20111108
  Receipt Date: 20130118
  Transmission Date: 20140127
  Serious: Yes (Hospitalization)
  Sender: FDA-Public Use
  Company Number: PHHY2011IL95156

PATIENT
  Age: 80 Year
  Sex: Female

DRUGS (4)
  1. SANDOSTATIN LAR [Suspect]
     Indication: ACROMEGALY
     Dosage: 20 MG EVERY 14 DAYS
     Dates: start: 20091026
  2. SANDOSTATIN LAR [Suspect]
     Dosage: 60 MG, EVERY 4 WEEKS
  3. SANDOSTATIN LAR [Suspect]
     Dosage: 60 MG, EVERY 4 WEEKS
     Dates: start: 20121216
  4. DRUG THERAPY NOS [Concomitant]

REACTIONS (4)
  - Diabetes mellitus [Recovering/Resolving]
  - Dermatitis [Recovering/Resolving]
  - Skin disorder [Not Recovered/Not Resolved]
  - Fall [Unknown]
